FAERS Safety Report 21533087 (Version 2)
Quarter: 2022Q4

REPORT INFORMATION
  Report Type: Spontaneous
  Country: CZ (occurrence: CZ)
  Receive Date: 20221101
  Receipt Date: 20221222
  Transmission Date: 20230112
  Serious: Yes (Hospitalization, Other)
  Sender: FDA-Public Use
  Company Number: CZ-MYLANLABS-2022M1112398

PATIENT
  Sex: Female
  Weight: 65 kg

DRUGS (9)
  1. METFORMIN [Suspect]
     Active Substance: METFORMIN HYDROCHLORIDE
     Indication: Type 2 diabetes mellitus
     Dosage: 1000 MILLIGRAM, ONCE A DAY
     Route: 065
  2. FUROSEMIDE [Suspect]
     Active Substance: FUROSEMIDE
     Indication: Peripheral swelling
     Dosage: 40 MILLIGRAM, DAILY
     Route: 048
  3. ACETAMINOPHEN\TRAMADOL [Suspect]
     Active Substance: ACETAMINOPHEN\TRAMADOL
     Indication: Spinal pain
     Dosage: 1 DOSAGE FORM, DAILY (3 DOSAGE FORMS DAILY; 37.5/325 MG )
     Route: 048
  4. FOSINOPRIL [Concomitant]
     Active Substance: FOSINOPRIL
     Indication: Hypertension
     Dosage: 20 MILLIGRAM, ONCE A DAY
     Route: 042
  5. FOSINOPRIL [Concomitant]
     Active Substance: FOSINOPRIL
     Dosage: 40 MILLIGRAM, ONCE A DAY
     Route: 065
  6. ACETAMINOPHEN [Concomitant]
     Active Substance: ACETAMINOPHEN
     Indication: Spinal pain
     Dosage: 975 MILLIGRAM, ONCE A DAY (325 MILLIGRAM, TID (325 MILLIGRAM, TID) )
     Route: 065
  7. DIETARY SUPPLEMENT\HERBALS\MILK THISTLE [Concomitant]
     Active Substance: DIETARY SUPPLEMENT\HERBALS\MILK THISTLE
     Indication: Liver disorder
     Dosage: 50 MILLIGRAM, ONCE A DAY (50 MILLIGRAM, QD (50 MILLIGRAM, QD) )
     Route: 065
  8. TRAMADOL [Concomitant]
     Active Substance: TRAMADOL
     Indication: Spinal pain
     Dosage: 111 MILLIGRAM, ONCE A DAY (37 MILLIGRAM, TID (37 MILLIGRAM, TID))
     Route: 065
  9. TRAMADOL [Concomitant]
     Active Substance: TRAMADOL
     Dosage: 112.5 MILLIGRAM, ONCE A DAY (37.5 MILLIGRAM, TID)

REACTIONS (13)
  - Amylase [Unknown]
  - Atrial fibrillation [Unknown]
  - COVID-19 [Unknown]
  - Cardiomegaly [Unknown]
  - Dyspnoea [Recovered/Resolved]
  - Liver disorder [Unknown]
  - Microcytic anaemia [Unknown]
  - Nephropathy [Unknown]
  - Peripheral swelling [Recovering/Resolving]
  - Pulmonary hypertension [Unknown]
  - Thrombosis [Not Recovered/Not Resolved]
  - Ventricular tachycardia [Unknown]
  - Treatment noncompliance [Recovered/Resolved]
